FAERS Safety Report 7602148-7 (Version None)
Quarter: 2011Q3

REPORT INFORMATION
  Report Type: 
  Country: None (occurrence: None)
  Receive Date: 20110711
  Receipt Date: 20110629
  Transmission Date: 20111222
  Serious: Yes (Hospitalization, Other)
  Sender: FDA-Public Use
  Company Number: ES-ELI_LILLY_AND_COMPANY-ES201106008709

PATIENT
  Sex: Male

DRUGS (5)
  1. FORTEO [Suspect]
     Indication: OSTEOPOROSIS
     Dosage: 20 UG, DAILY (1/D)
     Route: 058
     Dates: start: 20100809, end: 20110628
  2. PANTOPRAZOLE [Concomitant]
     Indication: GASTRIC DISORDER
     Dosage: 1 DF, QD
     Route: 048
  3. OXYCONTIN [Concomitant]
     Indication: ANALGESIC THERAPY
     Route: 048
  4. SINTROM [Concomitant]
     Dosage: 1 DF, QD
     Route: 048
  5. SPIRIVA [Concomitant]
     Indication: RESPIRATORY DISORDER
     Dosage: 1 DF, QD
     Route: 055

REACTIONS (2)
  - CARDIOPULMONARY FAILURE [None]
  - BRADYCARDIA [None]
